FAERS Safety Report 12580967 (Version 4)
Quarter: 2016Q3

REPORT INFORMATION
  Report Type: Report from Study
  Country: US (occurrence: US)
  Receive Date: 20160721
  Receipt Date: 20160914
  Transmission Date: 20161109
  Serious: Yes (Death, Other)
  Sender: FDA-Public Use
  Company Number: US-009507513-1607USA007723

PATIENT
  Age: 57 Year
  Sex: Female
  Weight: 50.7 kg

DRUGS (2)
  1. NOXAFIL [Suspect]
     Active Substance: POSACONAZOLE
     Indication: SYSTEMIC CANDIDA
     Dosage: 400 MG TABLETS DAILY
     Route: 048
     Dates: start: 20160217, end: 20160621
  2. NOXAFIL [Suspect]
     Active Substance: POSACONAZOLE
     Indication: STEM CELL TRANSPLANT

REACTIONS (3)
  - Product use issue [Unknown]
  - Graft versus host disease [Fatal]
  - Immunosuppression [Fatal]

NARRATIVE: CASE EVENT DATE: 20160217
